FAERS Safety Report 8199893 (Version 4)
Quarter: 2012Q4

REPORT INFORMATION
  Report Type: Report from Study
  Country: JP (occurrence: JP)
  Receive Date: 20111026
  Receipt Date: 20121004
  Transmission Date: 20130627
  Serious: Yes (Death, Hospitalization, Other)
  Sender: FDA-Public Use
  Company Number: JP-JNJFOC-20111009621

PATIENT
  Age: 64 Year
  Sex: Male
  Weight: 33 kg

DRUGS (25)
  1. FENTANYL [Suspect]
     Indication: PAIN
     Route: 062
     Dates: start: 20100813, end: 20101218
  2. FENTANYL [Suspect]
     Indication: PAIN
     Route: 062
     Dates: start: 20100812, end: 20100813
  3. FENTANYL [Suspect]
     Indication: PAIN
     Route: 062
     Dates: start: 20100731, end: 20100812
  4. FENTANYL [Suspect]
     Indication: PAIN
     Route: 062
     Dates: start: 20100725, end: 20100731
  5. CYTOTEC [Concomitant]
     Indication: PRODUCT USED FOR UNKNOWN INDICATION
     Route: 048
     Dates: end: 20101224
  6. OMEPRAZON [Concomitant]
     Indication: PRODUCT USED FOR UNKNOWN INDICATION
     Route: 048
     Dates: end: 20101224
  7. PREDNISOLONE [Concomitant]
     Indication: PAIN
     Route: 048
     Dates: end: 20101224
  8. DIFLUCAN [Concomitant]
     Indication: PROPHYLAXIS
     Route: 048
     Dates: end: 20101224
  9. LUDIOMIL [Concomitant]
     Indication: PROPHYLAXIS
     Route: 048
     Dates: end: 20101224
  10. DOGMATYL [Concomitant]
     Indication: PRODUCT USED FOR UNKNOWN INDICATION
     Route: 048
     Dates: end: 20101224
  11. PAXIL [Concomitant]
     Indication: PRODUCT USED FOR UNKNOWN INDICATION
     Route: 048
     Dates: end: 20101224
  12. PROGRAF [Concomitant]
     Indication: PAIN
     Route: 048
     Dates: end: 20101224
  13. FLIVAS [Concomitant]
     Indication: PRODUCT USED FOR UNKNOWN INDICATION
     Route: 048
     Dates: end: 20101224
  14. MUCODYNE [Concomitant]
     Indication: PRODUCT USED FOR UNKNOWN INDICATION
     Route: 048
     Dates: end: 20101224
  15. BREDININ [Concomitant]
     Indication: PAIN
     Route: 048
     Dates: end: 20101224
  16. LENDORMIN [Concomitant]
     Indication: INSOMNIA
     Route: 048
     Dates: end: 20101109
  17. SILECE [Concomitant]
     Indication: INSOMNIA
     Route: 048
     Dates: end: 20101109
  18. SPIRIVA [Concomitant]
     Indication: ASTHMA
     Route: 055
     Dates: end: 20101221
  19. ZYLORIC [Concomitant]
     Indication: HYPERURICAEMIA
     Route: 048
     Dates: end: 20101228
  20. NOVAMIN [Concomitant]
     Indication: PROPHYLAXIS
     Route: 048
     Dates: start: 20100725, end: 20100811
  21. MAGLAX [Concomitant]
     Indication: PROPHYLAXIS
     Route: 048
     Dates: start: 20100725, end: 20100831
  22. PURSENNID [Concomitant]
     Indication: PROPHYLAXIS
     Route: 048
     Dates: start: 20100725, end: 20100818
  23. PYRINAZIN [Concomitant]
     Indication: PAIN
     Route: 048
     Dates: start: 20100117, end: 20101026
  24. PYRINAZIN [Concomitant]
     Indication: PAIN
     Route: 048
     Dates: start: 20101027, end: 20101228
  25. TETRAMIDE [Concomitant]
     Indication: DEPRESSION
     Route: 048
     Dates: start: 20101108, end: 20101221

REACTIONS (5)
  - Cardiac failure [Fatal]
  - Pneumonia [Fatal]
  - Altered state of consciousness [Unknown]
  - Delirium [Recovered/Resolved]
  - Somnolence [Recovered/Resolved]
